FAERS Safety Report 8352976-8 (Version None)
Quarter: 2012Q2

REPORT INFORMATION
  Report Type: 
  Country: None (occurrence: None)
  Receive Date: 20120511
  Receipt Date: 20111027
  Transmission Date: 20120825
  Serious: No
  Sender: FDA-Public Use
  Company Number: US-GLAXOSMITHKLINE-A0951279A

PATIENT
  Age: 74 Year
  Sex: Male

DRUGS (1)
  1. DYNACIRC CR [Suspect]
     Route: 065

REACTIONS (2)
  - HYPERTENSION [None]
  - URINARY TRACT INFECTION [None]
